FAERS Safety Report 7496412-2 (Version None)
Quarter: 2011Q2

REPORT INFORMATION
  Report Type: 
  Country: None (occurrence: None)
  Receive Date: 20110523
  Receipt Date: 20110512
  Transmission Date: 20111010
  Serious: Yes (Hospitalization)
  Sender: FDA-Public Use
  Company Number: PHHY2011DE24991

PATIENT

DRUGS (4)
  1. INSULIN [Concomitant]
     Dosage: UNK UKN, UNK
  2. CIPROFLOXACIN [Suspect]
     Indication: SEPSIS
     Dosage: 400 MG, (TWO DOSES 3 AND 11 HOURS AFTER ADMISSION, RESPECTIVELY)
     Route: 042
  3. ERYTHROMYCIN [Suspect]
     Dosage: 250 MG, (ONE DOSE)
     Route: 042
  4. AMIODARONE HCL [Suspect]
     Dosage: 300 MG, UNK
     Route: 042

REACTIONS (9)
  - TACHYCARDIA [None]
  - OESOPHAGEAL VARICES HAEMORRHAGE [None]
  - ATRIAL FIBRILLATION [None]
  - HEPATIC CIRRHOSIS [None]
  - TORSADE DE POINTES [None]
  - EXTRASYSTOLES [None]
  - HEART RATE INCREASED [None]
  - ELECTROCARDIOGRAM ABNORMAL [None]
  - PYREXIA [None]
